FAERS Safety Report 6959342-8 (Version None)
Quarter: 2010Q3

REPORT INFORMATION
  Report Type: 
  Country: None (occurrence: None)
  Receive Date: 20100831
  Receipt Date: 20100831
  Transmission Date: 20110219
  Serious: Yes (Hospitalization)
  Sender: FDA-Public Use
  Company Number: None

PATIENT
  Age: 41 Year
  Sex: Male
  Weight: 129.1 kg

DRUGS (2)
  1. VANCOMYCIN [Suspect]
     Indication: DIABETIC FOOT INFECTION
     Dosage: 1500 MG Q12H IV
     Route: 042
     Dates: start: 20100819, end: 20100820
  2. VANCOMYCIN [Suspect]
     Indication: OSTEOMYELITIS
     Dosage: 1500 MG Q12H IV
     Route: 042
     Dates: start: 20100819, end: 20100820

REACTIONS (4)
  - ANTIBIOTIC LEVEL ABOVE THERAPEUTIC [None]
  - PRODUCT CONTAMINATION [None]
  - PRODUCT SUBSTITUTION ISSUE [None]
  - RENAL FAILURE ACUTE [None]
